FAERS Safety Report 11632292 (Version 1)
Quarter: 2015Q4

REPORT INFORMATION
  Report Type: Report from Study
  Country: US (occurrence: US)
  Receive Date: 20151015
  Receipt Date: 20151015
  Transmission Date: 20160304
  Serious: Yes (Hospitalization)
  Sender: FDA-Public Use
  Company Number: US-ABBVIE-15K-163-1479731-00

PATIENT
  Age: 57 Year
  Sex: Female
  Weight: 95.34 kg

DRUGS (14)
  1. FLEXERIL [Concomitant]
     Active Substance: CYCLOBENZAPRINE HYDROCHLORIDE
     Indication: PAIN
  2. SERTRALINE [Concomitant]
     Active Substance: SERTRALINE HYDROCHLORIDE
     Indication: DEPRESSION
  3. VITAMIN B [Concomitant]
     Active Substance: VITAMIN B
     Indication: PRODUCT USED FOR UNKNOWN INDICATION
     Route: 050
  4. HUMIRA [Suspect]
     Active Substance: ADALIMUMAB
     Indication: CROHN^S DISEASE
     Route: 058
     Dates: start: 201411
  5. METFORMIN [Concomitant]
     Active Substance: METFORMIN HYDROCHLORIDE
     Indication: DIABETES MELLITUS
  6. ZOCOR [Concomitant]
     Active Substance: SIMVASTATIN
     Indication: BLOOD CHOLESTEROL INCREASED
  7. ATENOLOL. [Concomitant]
     Active Substance: ATENOLOL
     Indication: HYPERTENSION
  8. MORPHINE [Concomitant]
     Active Substance: MORPHINE
     Indication: PAIN
  9. FENOFIBRATE. [Concomitant]
     Active Substance: FENOFIBRATE
     Indication: BLOOD CHOLESTEROL INCREASED
  10. VITAMIN D [Concomitant]
     Active Substance: CHOLECALCIFEROL
     Indication: PRODUCT USED FOR UNKNOWN INDICATION
  11. COLESTIPOL [Concomitant]
     Active Substance: COLESTIPOL
     Indication: CHOLECYSTECTOMY
  12. GLIPIZIDE. [Concomitant]
     Active Substance: GLIPIZIDE
     Indication: DIABETES MELLITUS
  13. OXYCODONE [Concomitant]
     Active Substance: OXYCODONE
     Indication: PAIN
  14. ASPIRIN. [Concomitant]
     Active Substance: ASPIRIN
     Indication: PRODUCT USED FOR UNKNOWN INDICATION

REACTIONS (9)
  - Contusion [Recovering/Resolving]
  - White blood cell count increased [Recovered/Resolved]
  - Local swelling [Recovering/Resolving]
  - Traumatic haematoma [Recovering/Resolving]
  - Fall [Recovered/Resolved]
  - Dizziness [Recovering/Resolving]
  - Loss of consciousness [Recovered/Resolved]
  - Cerebral haematoma [Recovering/Resolving]
  - Head injury [Not Recovered/Not Resolved]

NARRATIVE: CASE EVENT DATE: 201508
